FAERS Safety Report 10211351 (Version 1)
Quarter: 2014Q2

REPORT INFORMATION
  Report Type: Spontaneous
  Country: US (occurrence: None)
  Receive Date: 20140530
  Receipt Date: 20140530
  Transmission Date: 20141212
  Serious: Yes (Hospitalization)
  Sender: FDA-Public Use
  Company Number: None

PATIENT
  Age: 50 Year
  Sex: Male
  Weight: 188.7 kg

DRUGS (1)
  1. TESTOSTERONE [Suspect]
     Indication: HYPOGONADISM
     Route: 062
     Dates: start: 20140514, end: 20140528

REACTIONS (1)
  - Pulmonary embolism [None]
